FAERS Safety Report 10285560 (Version 1)
Quarter: 2014Q3

REPORT INFORMATION
  Report Type: Spontaneous
  Country: CA (occurrence: CA)
  Receive Date: 20140709
  Receipt Date: 20140709
  Transmission Date: 20150326
  Serious: Yes (Other)
  Sender: FDA-Public Use
  Company Number: CA-AMGEN-CANSP2014050210

PATIENT
  Age: 82 Year
  Sex: Female
  Weight: 63.49 kg

DRUGS (6)
  1. ASPIRIN. [Concomitant]
     Active Substance: ASPIRIN
  2. IMOVANE [Concomitant]
     Active Substance: ZOPICLONE
  3. PANTOLOC                           /01263204/ [Concomitant]
  4. SYNTHROID [Concomitant]
     Active Substance: LEVOTHYROXINE SODIUM
  5. TYLENOL [Concomitant]
     Active Substance: ACETAMINOPHEN
  6. PROLIA [Suspect]
     Active Substance: DENOSUMAB
     Indication: PRODUCT USED FOR UNKNOWN INDICATION
     Dosage: 60 MG, QD
     Route: 058

REACTIONS (14)
  - Paraesthesia [Recovered/Resolved]
  - Purulence [Recovered/Resolved]
  - Swelling face [Recovered/Resolved]
  - Acne [Recovered/Resolved]
  - Local swelling [Recovered/Resolved]
  - Abdominal distension [Recovered/Resolved]
  - Lip injury [Recovered/Resolved]
  - Lip haemorrhage [Recovered/Resolved]
  - Pruritus [Recovered/Resolved]
  - Swollen tongue [Recovered/Resolved]
  - Asphyxia [Recovered/Resolved]
  - Abdominal pain [Recovered/Resolved]
  - Nausea [Recovered/Resolved]
  - Lip swelling [Recovered/Resolved]
